FAERS Safety Report 10195259 (Version 1)
Quarter: 2014Q2

REPORT INFORMATION
  Report Type: Report from Study
  Country: US (occurrence: US)
  Receive Date: 20140526
  Receipt Date: 20140526
  Transmission Date: 20141212
  Serious: Yes (Hospitalization)
  Sender: FDA-Public Use
  Company Number: US-BRISTOL-MYERS SQUIBB COMPANY-20766069

PATIENT
  Age: 32 Year
  Sex: Female
  Weight: 85.71 kg

DRUGS (4)
  1. REYATAZ [Suspect]
     Indication: HIV INFECTION
     Dosage: LAST DOSE: 05MAY2014?INTERRUPTED: 07MAY2014
     Route: 048
     Dates: start: 20100127
  2. NORVIR [Suspect]
     Indication: HIV INFECTION
     Dosage: LAST DOSE: 05MAY2014.?INTERRUPTED: 07MAY2014
     Route: 048
     Dates: start: 20100127
  3. TRUVADA [Suspect]
     Indication: HIV INFECTION
     Dosage: LAST DOSE: 05MAY2014.?INTERRUPTED: 07MAY2014
     Route: 048
     Dates: start: 20100127
  4. IRON [Concomitant]
     Indication: ANAEMIA
     Route: 048

REACTIONS (1)
  - Bile duct stone [Recovering/Resolving]
